FAERS Safety Report 4448984-X (Version None)
Quarter: 2004Q3

REPORT INFORMATION
  Report Type: 
  Country: None (occurrence: None)
  Receive Date: 20040910
  Receipt Date: 20040827
  Transmission Date: 20050211
  Serious: Yes (Hospitalization)
  Sender: FDA-Public Use
  Company Number: 2004AP04319

PATIENT
  Age: 53 Year
  Sex: Male

DRUGS (16)
  1. ZOMIG [Suspect]
     Indication: MIGRAINE
     Dosage: 2.5 MG QOD PO
     Route: 048
     Dates: start: 20040510, end: 20040727
  2. BLOPRESS [Concomitant]
  3. LASIX [Concomitant]
  4. GASTER D [Concomitant]
  5. PURSENNNID [Concomitant]
  6. MAGNESIUM OXIDE [Concomitant]
  7. DEPAS [Concomitant]
  8. TERNELIN [Concomitant]
  9. DEPAKENE [Concomitant]
  10. DIHYDERGOT [Concomitant]
  11. AM [Concomitant]
  12. ALMARL [Concomitant]
  13. DIAZEPAM [Concomitant]
  14. MIGRISTENE [Concomitant]
  15. MIGSIS [Concomitant]
  16. IMIGRAN [Concomitant]

REACTIONS (3)
  - BLOOD CREATINE PHOSPHOKINASE INCREASED [None]
  - RENAL DISORDER [None]
  - RENAL FAILURE [None]
